FAERS Safety Report 8505901-0 (Version None)
Quarter: 2012Q3

REPORT INFORMATION
  Report Type: 
  Country: None (occurrence: None)
  Receive Date: 20120712
  Receipt Date: 20120709
  Transmission Date: 20120928
  Serious: Yes (Other)
  Sender: FDA-Public Use
  Company Number: BR-SANOFI-AVENTIS-2012SA048974

PATIENT
  Age: 69 Year
  Sex: Male
  Weight: 90 kg

DRUGS (12)
  1. COZAAR [Concomitant]
     Route: 048
     Dates: start: 20111201
  2. METFORMIN HCL [Concomitant]
     Indication: TYPE 2 DIABETES MELLITUS
     Route: 048
     Dates: start: 20070101
  3. HYPERIUM [Concomitant]
     Indication: BLOOD PRESSURE
     Route: 048
     Dates: start: 19970101
  4. ASPIRIN [Concomitant]
     Route: 048
     Dates: start: 19820101
  5. BENERVA [Concomitant]
     Route: 048
     Dates: start: 20020101
  6. ATORVASTATIN [Concomitant]
     Route: 048
     Dates: start: 20000101
  7. PROPAFENONE HYDROCHLORIDE [Concomitant]
     Route: 048
     Dates: start: 20020101
  8. LERCANIDIPINE [Concomitant]
     Indication: BLOOD PRESSURE
     Route: 048
     Dates: start: 20020101
  9. LANTUS [Suspect]
     Indication: TYPE 2 DIABETES MELLITUS
     Route: 058
     Dates: start: 20070101
  10. PLAVIX [Concomitant]
     Route: 048
     Dates: start: 20040101
  11. TIOTROPIUM [Concomitant]
     Indication: LUNG DISORDER
     Dosage: 1 ASPIRATION DAILY
     Dates: start: 20070101
  12. JANUVIA [Concomitant]
     Indication: TYPE 2 DIABETES MELLITUS
     Route: 048
     Dates: start: 20090101

REACTIONS (1)
  - GLAUCOMA [None]
